FAERS Safety Report 4822147-8 (Version None)
Quarter: 2005Q4

REPORT INFORMATION
  Report Type: 
  Country: None (occurrence: None)
  Receive Date: 20051107
  Receipt Date: 20051101
  Transmission Date: 20060501
  Serious: Yes (Hospitalization)
  Sender: FDA-Public Use
  Company Number: GB-ABBOTT-05P-167-0316121-00

PATIENT
  Sex: Male
  Weight: 118.2 kg

DRUGS (8)
  1. KALETRA [Suspect]
     Indication: DRUG USE FOR UNKNOWN INDICATION
     Route: 048
     Dates: start: 20050829, end: 20050922
  2. KALETRA [Suspect]
     Route: 048
     Dates: start: 20050927
  3. TRUVADA [Suspect]
     Indication: DRUG USE FOR UNKNOWN INDICATION
     Route: 048
     Dates: start: 20050829, end: 20050922
  4. TRUVADA [Suspect]
     Route: 048
     Dates: start: 20050927
  5. TRAZODONE HCL [Concomitant]
     Indication: DRUG USE FOR UNKNOWN INDICATION
     Dates: start: 20040909
  6. OLANZAPINE [Concomitant]
     Indication: DRUG USE FOR UNKNOWN INDICATION
     Dates: start: 20040909
  7. FLUOXETINE HYDROCHLORIDE [Concomitant]
     Indication: DRUG USE FOR UNKNOWN INDICATION
     Dates: start: 20040909
  8. LISINOPRIL [Concomitant]
     Indication: DRUG USE FOR UNKNOWN INDICATION
     Dates: start: 20050722

REACTIONS (3)
  - GASTRITIS [None]
  - PANCREATITIS ACUTE [None]
  - URINARY TRACT INFECTION [None]
